FAERS Safety Report 5036574-X (Version None)
Quarter: 2006Q2

REPORT INFORMATION
  Report Type: 
  Country: None (occurrence: None)
  Receive Date: 20060623
  Receipt Date: 20060613
  Transmission Date: 20061013
  Serious: Yes (Hospitalization)
  Sender: FDA-Public Use
  Company Number: 2006075758

PATIENT
  Age: 57 Year
  Sex: Female

DRUGS (7)
  1. TAHOR (ATORVASTATIN) [Suspect]
     Indication: ILL-DEFINED DISORDER
     Dosage: (40 MG), ORAL
     Route: 048
  2. ACETAMINOPHEN W/ PROPOXYPHENE HCL [Suspect]
     Indication: ILL-DEFINED DISORDER
     Dosage: 6 DOSE FORMS (DAILY), ORAL
     Route: 048
     Dates: start: 20060220, end: 20060223
  3. FLUINDIONE (FLUINDIONE) [Suspect]
     Indication: ILL-DEFINED DISORDER
     Dosage: ORAL
     Route: 048
     Dates: start: 20060221
  4. OMEPRAZOLE [Suspect]
     Indication: ILL-DEFINED DISORDER
     Dosage: 20, ORAL
     Route: 048
     Dates: end: 20060223
  5. RAMIPRIL [Suspect]
     Indication: ILL-DEFINED DISORDER
     Dosage: (1.25 MG), ORAL
     Route: 048
  6. BISOPROLOL FUMARATE [Concomitant]
  7. TINZAPARIN SODIUM                      (HEPARIN-FRACTION, SODIUM SALT) [Concomitant]

REACTIONS (3)
  - BLOOD LACTATE DEHYDROGENASE INCREASED [None]
  - CHOLESTASIS [None]
  - GAMMA-GLUTAMYLTRANSFERASE INCREASED [None]
